FAERS Safety Report 20646306 (Version 1)
Quarter: 2022Q1

REPORT INFORMATION
  Report Type: Report from Study
  Country: EG (occurrence: EG)
  Receive Date: 20220329
  Receipt Date: 20220329
  Transmission Date: 20220423
  Serious: Yes (Death, Other)
  Sender: FDA-Public Use
  Company Number: EG-BAYER-2022A041844

PATIENT
  Sex: Male

DRUGS (1)
  1. EYLEA [Suspect]
     Active Substance: AFLIBERCEPT
     Indication: Neovascular age-related macular degeneration
     Dosage: LEFT EYE, TOTAL DOSE AND LAST DOSE PIROR THE EVENT WERE NOT REPORTED
     Route: 031
     Dates: start: 202111

REACTIONS (1)
  - Death [Fatal]
